FAERS Safety Report 7559630-0 (Version None)
Quarter: 2011Q2

REPORT INFORMATION
  Report Type: 
  Country: None (occurrence: None)
  Receive Date: 20110617
  Receipt Date: 20110617
  Transmission Date: 20111010
  Serious: Yes (Death)
  Sender: FDA-Public Use
  Company Number: None

PATIENT
  Age: 77 Year
  Sex: Female

DRUGS (1)
  1. REVLIMID [Suspect]
     Indication: MULTIPLE MYELOMA
     Dosage: 5MG QD21D/Z5D ORALLY
     Route: 048
     Dates: start: 20101001, end: 20101201

REACTIONS (7)
  - GENERALISED OEDEMA [None]
  - HAEMODIALYSIS [None]
  - OESOPHAGITIS [None]
  - DRUG TOLERANCE DECREASED [None]
  - CARDIO-RESPIRATORY ARREST [None]
  - CONDITION AGGRAVATED [None]
  - RENAL DISORDER [None]
